FAERS Safety Report 6262730-9 (Version None)
Quarter: 2009Q3

REPORT INFORMATION
  Report Type: 
  Country: None (occurrence: None)
  Receive Date: 20090708
  Receipt Date: 20090629
  Transmission Date: 20100115
  Serious: Yes (Death)
  Sender: FDA-Public Use
  Company Number: 2009AL004284

PATIENT
  Sex: Male

DRUGS (1)
  1. DIGOXIN [Suspect]
     Dosage: PO
     Route: 048
     Dates: start: 20020101, end: 20070101

REACTIONS (3)
  - ECONOMIC PROBLEM [None]
  - MULTIPLE INJURIES [None]
  - RENAL FAILURE [None]
